FAERS Safety Report 23605880 (Version 1)
Quarter: 2024Q1

REPORT INFORMATION
  Report Type: Spontaneous
  Country: US (occurrence: US)
  Receive Date: 20240307
  Receipt Date: 20240307
  Transmission Date: 20240410
  Serious: Yes (Hospitalization, Other)
  Sender: FDA-Public Use
  Company Number: None

PATIENT
  Age: 74 Year
  Sex: Male

DRUGS (10)
  1. PROPOFOL [Suspect]
     Active Substance: PROPOFOL
     Indication: Anaesthesia
     Route: 042
  2. PROPOFOL [Suspect]
     Active Substance: PROPOFOL
     Indication: Status epilepticus
  3. MIDAZOLAM [Suspect]
     Active Substance: MIDAZOLAM
     Indication: Status epilepticus
     Route: 042
  4. MIDAZOLAM [Suspect]
     Active Substance: MIDAZOLAM
     Indication: Anaesthesia
     Dosage: ESCALATION OF MIDAZOLAM INFUSION TO A DOSE OF 20 MG/H
     Route: 042
  5. LACOSAMIDE [Concomitant]
     Active Substance: LACOSAMIDE
     Indication: Status epilepticus
  6. LACOSAMIDE [Concomitant]
     Active Substance: LACOSAMIDE
     Dosage: LOADING DOSE
  7. LEVETIRACETAM [Concomitant]
     Active Substance: LEVETIRACETAM
     Indication: Status epilepticus
  8. LEVETIRACETAM [Concomitant]
     Active Substance: LEVETIRACETAM
     Route: 042
  9. FOSPHENYTOIN [Concomitant]
     Active Substance: FOSPHENYTOIN
     Indication: Product used for unknown indication
     Dosage: LOADING DOSE
  10. PHENYTOIN [Concomitant]
     Active Substance: PHENYTOIN
     Indication: Status epilepticus

REACTIONS (1)
  - Hypotension [Unknown]
